FAERS Safety Report 14890178 (Version 6)
Quarter: 2019Q2

REPORT INFORMATION
  Report Type: Spontaneous
  Country: US (occurrence: US)
  Receive Date: 20180514
  Receipt Date: 20190624
  Transmission Date: 20190711
  Serious: Yes (Hospitalization, Other)
  Sender: FDA-Public Use
  Company Number: US-PFIZER INC-2018045806

PATIENT
  Age: 68 Year
  Sex: Female
  Weight: 69 kg

DRUGS (33)
  1. TIKOSYN [Suspect]
     Active Substance: DOFETILIDE
     Dosage: 250 UG, 2X/DAY (AM + PM)
     Dates: start: 201804
  2. TIKOSYN [Suspect]
     Active Substance: DOFETILIDE
     Dosage: 250 UG, 2X/DAY (AM PLUS PM)
     Dates: start: 201805
  3. TIKOSYN [Suspect]
     Active Substance: DOFETILIDE
     Dosage: 500 UG, 2X/DAY [AM + PM]
     Dates: start: 201808
  4. TIKOSYN [Suspect]
     Active Substance: DOFETILIDE
     Dosage: 375 UG, UNK
     Dates: start: 201805
  5. TIKOSYN [Suspect]
     Active Substance: DOFETILIDE
     Dosage: 500 UG, UNK
     Dates: start: 2018
  6. VITAMIN D [Concomitant]
     Active Substance: VITAMIN D NOS
     Dosage: UNK (2000)
  7. TIKOSYN [Suspect]
     Active Substance: DOFETILIDE
     Dosage: 3 DF
  8. TIKOSYN [Suspect]
     Active Substance: DOFETILIDE
     Dosage: 2 DF, DAILY
  9. TIKOSYN [Suspect]
     Active Substance: DOFETILIDE
     Dosage: 0.125 MG, UNK
  10. TIKOSYN [Suspect]
     Active Substance: DOFETILIDE
     Dosage: 250 UG, UNK
     Dates: start: 201804
  11. RESTASIS [Concomitant]
     Active Substance: CYCLOSPORINE
     Indication: DRY EYE
     Dosage: UNK
  12. TIKOSYN [Suspect]
     Active Substance: DOFETILIDE
     Dosage: 0.125 MG, UNK
  13. CANDESARTAN. [Concomitant]
     Active Substance: CANDESARTAN
     Dosage: 16 MG, 2X/DAY (IT IS 32 MG BUT I BREAK IT IN HALF AND I TAKE HALF IN THE MORNING AND HALF AT NIGHT)
  14. IMURAN [Concomitant]
     Active Substance: AZATHIOPRINE
     Indication: SYSTEMIC LUPUS ERYTHEMATOSUS
     Dosage: 50 MG, 2X/DAY(ONE IN THE MORNING ONE AT NIGHT)
  15. CLONAZEPAM. [Concomitant]
     Active Substance: CLONAZEPAM
     Dosage: 0.25 MG, 2X/DAY [TAKE A HALF IN THE MORNING AND A HALF LATER ON IN THE AFTERNOON]
  16. LEVOTHYROXINE. [Concomitant]
     Active Substance: LEVOTHYROXINE
     Dosage: 175 UG, UNK
  17. TIKOSYN [Suspect]
     Active Substance: DOFETILIDE
     Indication: ATRIAL FIBRILLATION
     Dosage: 1 DF, DAILY (8:00 AM)
     Route: 048
  18. OMEPRAZOLE. [Concomitant]
     Active Substance: OMEPRAZOLE
     Dosage: 40 MG, UNK (ONCE IN THE MORNING AND ONCE AT NIGHT)
  19. SINGULAIR [Concomitant]
     Active Substance: MONTELUKAST SODIUM
     Dosage: 10 MG, 1X/DAY (AT NIGHT TIME)
  20. TIKOSYN [Suspect]
     Active Substance: DOFETILIDE
     Dosage: 4 DF, DAILY
  21. ESTRACE [Concomitant]
     Active Substance: ESTRADIOL
     Indication: VULVOVAGINAL DRYNESS
     Dosage: UNK UNK, 2X/WEEK
  22. LASIX [Concomitant]
     Active Substance: FUROSEMIDE
     Dosage: 40 MG, UNK
     Dates: start: 20190219
  23. TIKOSYN [Suspect]
     Active Substance: DOFETILIDE
     Indication: BLOOD PRESSURE MEASUREMENT
     Dosage: 0.125 MG, 2X/DAY (1 AM AND 1 PM)
     Route: 048
     Dates: start: 20180124
  24. TIKOSYN [Suspect]
     Active Substance: DOFETILIDE
     Dosage: 4 DF, DAILY (500 MCG IN THE MORNING AND NIGHT)
  25. TIKOSYN [Suspect]
     Active Substance: DOFETILIDE
     Dosage: 500 UG, UNK
  26. CHLORTHALIDONE. [Concomitant]
     Active Substance: CHLORTHALIDONE
     Indication: BLOOD PRESSURE MEASUREMENT
     Dosage: 25 MG, 1X/DAY
     Dates: end: 20190219
  27. POTASSIUM [Concomitant]
     Active Substance: POTASSIUM
     Dosage: 40 MEQ, 2X/DAY [TWO IN THE AM AND TWO IN THE PM]
  28. SERTRALINE [Concomitant]
     Active Substance: SERTRALINE HYDROCHLORIDE
     Dosage: 200 MG, 1X/DAY (AT BED TIME)
  29. TRAVATAN Z [Concomitant]
     Active Substance: TRAVOPROST
     Indication: GLAUCOMA
     Dosage: 0.04 %
  30. SIMBRINZA [Concomitant]
     Active Substance: BRIMONIDINE TARTRATE\BRINZOLAMIDE
     Dosage: UNK
  31. WARFARIN [Concomitant]
     Active Substance: WARFARIN
     Dosage: UNK (7.5 EVERY DAY)
  32. ALDACTONE [Concomitant]
     Active Substance: SPIRONOLACTONE
     Dosage: 25 MG, 1X/DAY (1 AM)
     Dates: start: 20190324
  33. METOPROLOL TARTRATE. [Concomitant]
     Active Substance: METOPROLOL TARTRATE
     Dosage: 0.5 DF, 2X/DAY (1/2 AM AND 1/2 PM)
     Dates: start: 20190305

REACTIONS (8)
  - Haematoma [Recovering/Resolving]
  - Carotid artery occlusion [Unknown]
  - Bradycardia [Recovering/Resolving]
  - Weight increased [Unknown]
  - Tachycardia [Recovering/Resolving]
  - Cardiac valve disease [Unknown]
  - Drug ineffective [Unknown]
  - Blood pressure decreased [Recovered/Resolved]

NARRATIVE: CASE EVENT DATE: 20180501
